FAERS Safety Report 5563663-3 (Version None)
Quarter: 2007Q4

REPORT INFORMATION
  Report Type: 
  Country: None (occurrence: None)
  Receive Date: 20071217
  Receipt Date: 20070723
  Transmission Date: 20080405
  Serious: No
  Sender: FDA-Public Use
  Company Number: US-ASTRAZENECA-2007UW17808

PATIENT
  Age: 56 Year
  Sex: Female
  Weight: 104.3 kg

DRUGS (8)
  1. CRESTOR [Suspect]
     Indication: BLOOD CHOLESTEROL INCREASED
     Route: 048
     Dates: end: 20070701
  2. WARFARIN SODIUM [Concomitant]
  3. DIGOXIN [Concomitant]
  4. AMIODARONE HCL [Concomitant]
  5. MICARDIF [Concomitant]
  6. HYDROCHLORIDE [Concomitant]
  7. POTASSIUM CHLORIDE [Concomitant]
  8. MAGNESIUM [Concomitant]

REACTIONS (3)
  - EYE ROLLING [None]
  - ILL-DEFINED DISORDER [None]
  - LOSS OF CONSCIOUSNESS [None]
